FAERS Safety Report 4653196-0 (Version None)
Quarter: 2005Q2

REPORT INFORMATION
  Report Type: 
  Country: None (occurrence: None)
  Receive Date: 20050503
  Receipt Date: 20040812
  Transmission Date: 20051028
  Serious: Yes (Death)
  Sender: FDA-Public Use
  Company Number: F01200402459

PATIENT
  Age: 58 Year
  Sex: Male

DRUGS (2)
  1. (OXALIPLATIN) - SOLUTION- 130 MG/ M2 [Suspect]
     Indication: COLORECTAL CANCER METASTATIC
     Dosage: 243 MG Q3W INTRAVENOUS NOS
     Route: 042
     Dates: start: 20040719, end: 20040719
  2. CAPECITABINE - TABLET - 1000 MG/M2 [Suspect]
     Dosage: 3600 MG (1000 G/M2 TWICE DAILY FROM DAY 1 TO DAY 15, Q3W ORAL
     Route: 048
     Dates: start: 20040719, end: 20040725

REACTIONS (5)
  - BLOOD BILIRUBIN INCREASED [None]
  - DIARRHOEA [None]
  - HEPATIC ENCEPHALOPATHY [None]
  - METASTASIS [None]
  - RECTAL HAEMORRHAGE [None]
